FAERS Safety Report 16445669 (Version 1)
Quarter: 2019Q2

REPORT INFORMATION
  Report Type: Report from Study
  Country: US (occurrence: US)
  Receive Date: 20190618
  Receipt Date: 20190618
  Transmission Date: 20190711
  Serious: Yes (Hospitalization, Other)
  Sender: FDA-Public Use
  Company Number: US-TESAROUBC-2019-TSO01293-US

PATIENT
  Sex: Female

DRUGS (2)
  1. ZEJULA [Suspect]
     Active Substance: NIRAPARIB
     Indication: PRODUCT USED FOR UNKNOWN INDICATION
     Dosage: 200 MG, QD
     Route: 048
     Dates: start: 20190115
  2. ZEJULA [Suspect]
     Active Substance: NIRAPARIB
     Dosage: 200 UNK, UNK
     Route: 048
     Dates: start: 20190308

REACTIONS (8)
  - Memory impairment [Unknown]
  - Insomnia [Unknown]
  - Peripheral swelling [Unknown]
  - Thrombosis [Unknown]
  - Heart rate increased [Unknown]
  - Decreased appetite [Unknown]
  - Muscle spasms [Unknown]
  - Nausea [Not Recovered/Not Resolved]
